FAERS Safety Report 14111665 (Version 1)
Quarter: 2017Q4

REPORT INFORMATION
  Report Type: Spontaneous
  Country: US (occurrence: US)
  Receive Date: 20171020
  Receipt Date: 20171020
  Transmission Date: 20180321
  Serious: Yes (Other)
  Sender: FDA-Public Use
  Company Number: US-AMGEN-USASP2017156244

PATIENT
  Age: 85 Year
  Sex: Male

DRUGS (1)
  1. REPATHA [Suspect]
     Active Substance: EVOLOCUMAB
     Indication: BLOOD CHOLESTEROL INCREASED
     Dosage: 420 MG, QMO
     Route: 065
     Dates: start: 201704

REACTIONS (5)
  - Loss of personal independence in daily activities [Unknown]
  - Tooth extraction [Unknown]
  - Fatigue [Not Recovered/Not Resolved]
  - Hypothermia [Unknown]
  - Asthenia [Not Recovered/Not Resolved]

NARRATIVE: CASE EVENT DATE: 2017
